FAERS Safety Report 16701959 (Version 1)
Quarter: 2019Q3

REPORT INFORMATION
  Report Type: Report from Study
  Country: US (occurrence: US)
  Receive Date: 20190814
  Receipt Date: 20190814
  Transmission Date: 20191004
  Serious: Yes (Hospitalization, Other)
  Sender: FDA-Public Use
  Company Number: US-MYLANLABS-2018M1093406

PATIENT
  Age: 21 Year
  Sex: Female
  Weight: 51.2 kg

DRUGS (53)
  1. TIGECYCLINE. [Suspect]
     Active Substance: TIGECYCLINE
     Indication: PRODUCT USED FOR UNKNOWN INDICATION
     Dosage: 100 MG, ONCE/SINGLE
     Route: 042
     Dates: start: 20160331, end: 20160331
  2. CAYSTON [Suspect]
     Active Substance: AZTREONAM
     Indication: CYSTIC FIBROSIS
     Dosage: 3 DOSAGE FORM, QD (75)
     Route: 065
     Dates: start: 20160205, end: 20160403
  3. CAYSTON [Suspect]
     Active Substance: AZTREONAM
     Dosage: 3 DOSAGE FORM, QD (75)
     Route: 065
     Dates: start: 20160328, end: 20160331
  4. CAYSTON [Suspect]
     Active Substance: AZTREONAM
     Dosage: 3 DOSAGE FORM, QD (75)
     Route: 065
     Dates: start: 20161111, end: 20161209
  5. CAYSTON [Suspect]
     Active Substance: AZTREONAM
     Dosage: 3 DOSAGE FORM, QD (75)
     Route: 065
     Dates: start: 20170824, end: 20170921
  6. VITAMIN D3 [Concomitant]
     Active Substance: CHOLECALCIFEROL
     Dosage: 5000 U, UNK
     Route: 065
     Dates: start: 20160331
  7. ALBUTEROL                          /00139501/ [Concomitant]
     Active Substance: ALBUTEROL
     Indication: CYSTIC FIBROSIS
     Dosage: 2 DF, PRN (4 HRS)
     Route: 065
  8. TOBI PODHALER [Suspect]
     Active Substance: TOBRAMYCIN
     Indication: CYSTIC FIBROSIS
     Dosage: UNK
  9. TOBI [Suspect]
     Active Substance: TOBRAMYCIN
     Dosage: 2 DOSAGE FORM, QD (300)
     Route: 055
     Dates: start: 20160728, end: 20160825
  10. VENTOLIN HFA [Concomitant]
     Active Substance: ALBUTEROL SULFATE
     Indication: CYSTIC FIBROSIS
     Dosage: 2 DF (PUFFS), PRN
     Route: 065
     Dates: start: 20141210
  11. MIRALAX [Concomitant]
     Active Substance: POLYETHYLENE GLYCOL 3350
     Indication: CONSTIPATION
     Route: 065
  12. CAYSTON [Suspect]
     Active Substance: AZTREONAM
     Dosage: 3 DOSAGE FORM, QD (75)
     Route: 065
     Dates: start: 20160630, end: 20160707
  13. MULTI VITAMIN                      /08408501/ [Concomitant]
     Active Substance: VITAMINS
     Dosage: 1 DF, UNK
     Route: 065
     Dates: start: 20160331
  14. PULMOZYME [Concomitant]
     Active Substance: DORNASE ALFA
     Indication: CYSTIC FIBROSIS
     Dosage: 1 MG/ML, NEB
     Route: 065
     Dates: start: 20151207
  15. ZOFRAN [Concomitant]
     Active Substance: ONDANSETRON HYDROCHLORIDE
     Indication: NAUSEA
     Route: 065
  16. TOBI PODHALER [Suspect]
     Active Substance: TOBRAMYCIN
     Indication: CYSTIC FIBROSIS
     Dosage: 2 DOSAGE FORM, QD (112)
     Route: 055
     Dates: start: 20161210, end: 20161221
  17. VORICONAZOLE. [Suspect]
     Active Substance: VORICONAZOLE
     Indication: CYSTIC FIBROSIS LUNG
     Dosage: UNK
     Route: 065
     Dates: end: 20160422
  18. VORICONAZOLE. [Suspect]
     Active Substance: VORICONAZOLE
     Indication: BRONCHOPULMONARY ASPERGILLOSIS ALLERGIC
  19. CAYSTON [Suspect]
     Active Substance: AZTREONAM
     Dosage: 3 DOSAGE FORM, QD (75)
     Route: 065
     Dates: start: 20160909, end: 20161012
  20. CAYSTON [Suspect]
     Active Substance: AZTREONAM
     Dosage: 3 DOSAGE FORM, QD (75)
     Route: 065
     Dates: start: 20170714, end: 20170811
  21. CAYSTON [Suspect]
     Active Substance: AZTREONAM
     Dosage: 3 DOSAGE FORM, QD (75)
     Route: 065
     Dates: start: 20171019, end: 20171116
  22. CAYSTON [Suspect]
     Active Substance: AZTREONAM
     Dosage: 3 DOSAGE FORM, QD (75)
     Route: 065
     Dates: start: 20180124, end: 20180207
  23. LACTOBACILLUS [Concomitant]
     Active Substance: LACTOBACILLUS ACIDOPHILUS
     Indication: CYSTIC FIBROSIS
     Dosage: 1 DF, QD
     Route: 048
     Dates: start: 20151015
  24. MIRENA [Concomitant]
     Active Substance: LEVONORGESTREL
     Indication: PROPHYLAXIS
     Dosage: 1 DEVICE, UNK
     Route: 065
     Dates: start: 20140825
  25. TOBI PODHALER [Suspect]
     Active Substance: TOBRAMYCIN
     Dosage: 2 DOSAGE FORM, QD (112)
     Route: 055
     Dates: start: 20170106, end: 20170206
  26. TOBI [Suspect]
     Active Substance: TOBRAMYCIN
     Dosage: 2 DOSAGE FORM, QD (300)
     Route: 055
     Dates: start: 20170623
  27. VENTOLIN HFA [Concomitant]
     Active Substance: ALBUTEROL SULFATE
     Dosage: 2 DF (PUFFS), PRN
     Route: 065
     Dates: start: 20160331
  28. CREON [Concomitant]
     Active Substance: PANCRELIPASE AMYLASE\PANCRELIPASE LIPASE\PANCRELIPASE PROTEASE
     Indication: CYSTIC FIBROSIS
     Dosage: 1 DF, UNK
     Route: 048
     Dates: start: 20160518
  29. TOBI PODHALER [Suspect]
     Active Substance: TOBRAMYCIN
     Indication: PSEUDOMONAS INFECTION
     Dosage: 2 DOSAGE FORM, QD ( (300)
     Route: 055
     Dates: start: 20161013, end: 20161110
  30. TOBI [Suspect]
     Active Substance: TOBRAMYCIN
     Indication: CYSTIC FIBROSIS
     Dosage: 2 DOSAGE FORM, QD (300)
     Route: 055
     Dates: start: 20160305, end: 20160327
  31. TOBI [Suspect]
     Active Substance: TOBRAMYCIN
     Dosage: 2 DOSAGE FORM, QD (300)
     Route: 055
     Dates: start: 20160505, end: 20160517
  32. TIGECYCLINE. [Suspect]
     Active Substance: TIGECYCLINE
     Dosage: 50 MILLIGRAM, BID (Q12H)
     Route: 042
     Dates: start: 20160331
  33. CAYSTON [Suspect]
     Active Substance: AZTREONAM
     Dosage: 3 DOSAGE FORM, QD (75)
     Route: 065
     Dates: start: 20170525, end: 20170622
  34. BETHKIS [Suspect]
     Active Substance: TOBRAMYCIN
     Indication: PRODUCT USED FOR UNKNOWN INDICATION
     Dosage: 2 DOSAGE FORM, QD 300)
     Route: 065
     Dates: start: 20160520
  35. LACTOBACILLUS [Concomitant]
     Active Substance: LACTOBACILLUS ACIDOPHILUS
     Indication: SUPPLEMENTATION THERAPY
     Dosage: 1 DF, UNK
     Route: 065
     Dates: start: 20160331
  36. MIRENA [Concomitant]
     Active Substance: LEVONORGESTREL
     Dosage: 1 DEVICE
     Route: 065
     Dates: start: 20160331
  37. CLARITIN [Concomitant]
     Active Substance: LORATADINE
     Dosage: 10 MG, UNK
     Route: 065
     Dates: start: 20160331
  38. OXYCODONE [Concomitant]
     Active Substance: OXYCODONE
     Indication: ABDOMINAL PAIN UPPER
     Dosage: 10 MG, PRN (BID TO TID)
     Route: 065
  39. TOBI PODHALER [Suspect]
     Active Substance: TOBRAMYCIN
     Indication: PSEUDOMONAS INFECTION
  40. TOBI PODHALER [Suspect]
     Active Substance: TOBRAMYCIN
     Dosage: 2 DOSAGE FORM, QD (112)
     Route: 055
     Dates: start: 20170308, end: 20170327
  41. TOBI PODHALER [Suspect]
     Active Substance: TOBRAMYCIN
     Dosage: 2 DOSAGE FORM, QD (112)
     Route: 055
     Dates: start: 20180207, end: 20180214
  42. CAYSTON [Suspect]
     Active Substance: AZTREONAM
     Dosage: 3 DOSAGE FORM, QD (75)
     Route: 065
     Dates: start: 20161221, end: 20170104
  43. CAYSTON [Suspect]
     Active Substance: AZTREONAM
     Dosage: 3 DOSAGE FORM, QD (75)
     Route: 065
     Dates: start: 20170207, end: 20170307
  44. VITAMIN D3 [Concomitant]
     Active Substance: CHOLECALCIFEROL
     Indication: VITAMIN D DEFICIENCY
     Dosage: 5000 U, UNK
     Route: 065
     Dates: start: 20141119
  45. CLARITIN [Concomitant]
     Active Substance: LORATADINE
     Indication: HYPERSENSITIVITY
     Dosage: 10 MG, QD
     Route: 065
     Dates: start: 20150624
  46. PROZAC [Concomitant]
     Active Substance: FLUOXETINE HYDROCHLORIDE
     Indication: DEPRESSION
     Dosage: 20 MG, QD
     Route: 048
     Dates: start: 20151204
  47. TOBI [Suspect]
     Active Substance: TOBRAMYCIN
     Indication: PSEUDOMONAS INFECTION
     Dosage: 2 DOSAGE FORM, QD (300)
     Route: 055
     Dates: start: 20160104, end: 20160204
  48. TOBI [Suspect]
     Active Substance: TOBRAMYCIN
     Dosage: 2 DOSAGE FORM, QD (300)
     Route: 055
     Dates: start: 20160525, end: 20160604
  49. CAYSTON [Suspect]
     Active Substance: AZTREONAM
     Dosage: 3 DOSAGE FORM, QD (75)
     Route: 065
     Dates: start: 20160828, end: 20160907
  50. VITAMIN D3 [Concomitant]
     Active Substance: CHOLECALCIFEROL
     Indication: CYSTIC FIBROSIS
     Dosage: 5000 U, UNK
     Route: 065
     Dates: start: 20140907
  51. MULTI VITAMIN                      /08408501/ [Concomitant]
     Active Substance: VITAMINS
     Indication: SUPPLEMENTATION THERAPY
     Dosage: 1 DF, UNK
     Route: 065
     Dates: start: 20151217
  52. PROZAC [Concomitant]
     Active Substance: FLUOXETINE HYDROCHLORIDE
     Dosage: 20 MG, QD
     Route: 065
     Dates: start: 20160331
  53. FLOVENT [Concomitant]
     Active Substance: FLUTICASONE PROPIONATE
     Indication: CYSTIC FIBROSIS
     Dosage: 3 DF, QD
     Route: 065

REACTIONS (19)
  - Device dislocation [Recovered/Resolved]
  - Sepsis [Recovered/Resolved]
  - Pseudomonas infection [Unknown]
  - Haemoptysis [Recovered/Resolved]
  - Pyrexia [Recovered/Resolved]
  - Weight decreased [Not Recovered/Not Resolved]
  - Acne [Unknown]
  - Bronchitis [Recovered/Resolved]
  - Pancreatitis relapsing [Recovered/Resolved]
  - Bronchiectasis [Recovered/Resolved]
  - Pancreatitis [Recovered/Resolved]
  - Bronchopulmonary aspergillosis [Recovered/Resolved]
  - Fatigue [Unknown]
  - Concomitant disease aggravated [Unknown]
  - Infective pulmonary exacerbation of cystic fibrosis [Recovered/Resolved]
  - Abdominal pain [Unknown]
  - Lipase increased [Recovered/Resolved]
  - Cough [Unknown]
  - Alanine aminotransferase increased [Recovered/Resolved]

NARRATIVE: CASE EVENT DATE: 20160308
